FAERS Safety Report 13511811 (Version 1)
Quarter: 2017Q2

REPORT INFORMATION
  Report Type: Spontaneous
  Country: US (occurrence: US)
  Receive Date: 20170503
  Receipt Date: 20170503
  Transmission Date: 20170830
  Serious: No
  Sender: FDA-Public Use
  Company Number: None

PATIENT
  Age: 45 Year
  Sex: Female
  Weight: 81 kg

DRUGS (9)
  1. FLONASE [Concomitant]
     Active Substance: FLUTICASONE PROPIONATE
  2. CLARITIN [Concomitant]
     Active Substance: LORATADINE
  3. VITAMIN D [Concomitant]
     Active Substance: CHOLECALCIFEROL
  4. BENTYL [Concomitant]
     Active Substance: DICYCLOMINE HYDROCHLORIDE
  5. HYDROTHIAZIDE [Concomitant]
  6. BISOPROLOL [Concomitant]
     Active Substance: BISOPROLOL
  7. AMOX- CLAV [Suspect]
     Active Substance: AMOXICILLIN\CLAVULANATE POTASSIUM
     Indication: INFECTION PROPHYLAXIS
     Dosage: ?          QUANTITY:20 TABLET(S);?
     Route: 048
     Dates: start: 20170503, end: 20170503
  8. KLONIPIN [Concomitant]
     Active Substance: CLONAZEPAM
  9. OMEPROZOL [Concomitant]

REACTIONS (4)
  - Headache [None]
  - Back pain [None]
  - Crying [None]
  - Emotional disorder [None]

NARRATIVE: CASE EVENT DATE: 20170503
